FAERS Safety Report 9377630 (Version 3)
Quarter: 2013Q3

REPORT INFORMATION
  Report Type: Spontaneous
  Country: US (occurrence: US)
  Receive Date: 20130701
  Receipt Date: 20130816
  Transmission Date: 20140515
  Serious: Yes (Other)
  Sender: FDA-Public Use
  Company Number: US-PFIZER INC-2013194363

PATIENT
  Age: 48 Year
  Sex: Female
  Weight: 113 kg

DRUGS (14)
  1. LYRICA [Suspect]
     Indication: FIBROMYALGIA
     Dosage: 150 MG, 2X/DAY
     Route: 048
  2. ATENOLOL [Concomitant]
     Indication: MIGRAINE
     Dosage: UNK
  3. BUSPAR [Concomitant]
     Dosage: UNK
  4. MORPHINE [Concomitant]
     Dosage: UNK
  5. ATIVAN [Concomitant]
     Dosage: UNK
  6. SULPHASALAZINE [Concomitant]
     Dosage: UNK
  7. CYMBALTA [Concomitant]
     Dosage: UNK
  8. PREDNISONE [Concomitant]
     Dosage: UNK
  9. POTASSIUM CHLORIDE [Concomitant]
     Dosage: UNK
  10. OMEPRAZOLE [Concomitant]
     Dosage: UNK
  11. LEVOTHYROXINE [Concomitant]
     Dosage: UNK
  12. FIORICET [Concomitant]
     Dosage: UNK
  13. SOMA [Concomitant]
     Dosage: UNK
  14. LORTAB [Concomitant]
     Dosage: UNK

REACTIONS (6)
  - Psoriatic arthropathy [Unknown]
  - Visual impairment [Not Recovered/Not Resolved]
  - Vision blurred [Unknown]
  - Intervertebral disc degeneration [Unknown]
  - Altered visual depth perception [Unknown]
  - Blood sodium abnormal [Unknown]
